FAERS Safety Report 16115180 (Version 4)
Quarter: 2019Q2

REPORT INFORMATION
  Report Type: Spontaneous
  Country: US (occurrence: US)
  Receive Date: 20190325
  Receipt Date: 20190626
  Transmission Date: 20190711
  Serious: Yes (Other)
  Sender: FDA-Public Use
  Company Number: US-GLAXOSMITHKLINE-US2019GSK051042

PATIENT
  Sex: Female

DRUGS (2)
  1. NUCALA [Suspect]
     Active Substance: MEPOLIZUMAB
     Indication: ASTHMA
     Dosage: UNK
     Route: 058
     Dates: start: 20170401
  2. FASENRA [Suspect]
     Active Substance: BENRALIZUMAB
     Indication: ASTHMA
     Dosage: UNK

REACTIONS (10)
  - Product substitution issue [Unknown]
  - Rash [Unknown]
  - Therapeutic product effect decreased [Unknown]
  - Malaise [Unknown]
  - Nasopharyngitis [Unknown]
  - Asthma [Unknown]
  - Pruritus [Unknown]
  - Sinus operation [Unknown]
  - Wheezing [Unknown]
  - Inappropriate schedule of product administration [Unknown]
